FAERS Safety Report 10469247 (Version 1)
Quarter: 2014Q3

REPORT INFORMATION
  Report Type: Spontaneous
  Country: CZ (occurrence: None)
  Receive Date: 20140919
  Receipt Date: 20140919
  Transmission Date: 20150326
  Serious: Yes (Hospitalization)
  Sender: FDA-Public Use
  Company Number: CZ-ZYDUS-004974

PATIENT
  Age: 41 Year
  Sex: Female

DRUGS (4)
  1. VENLAFAXINE [Suspect]
     Active Substance: VENLAFAXINE HYDROCHLORIDE
     Dosage: 150.00-MG-1.0DAYS?
  2. CLONAZEPAM. [Suspect]
     Active Substance: CLONAZEPAM
     Dosage: 1.00-MG-1.0DAYS
  3. OLANZAPINE. [Suspect]
     Active Substance: OLANZAPINE
     Dosage: 10.00-MG-1.0DAYS
  4. MIANSERINE [Suspect]
     Active Substance: MIANSERIN HYDROCHLORIDE
     Dosage: 60.00-MG-1.0DAYS?

REACTIONS (1)
  - Toxicity to various agents [None]
